FAERS Safety Report 24683559 (Version 1)
Quarter: 2024Q4

REPORT INFORMATION
  Report Type: Spontaneous
  Country: CN (occurrence: CN)
  Receive Date: 20241201
  Receipt Date: 20241201
  Transmission Date: 20250115
  Serious: Yes (Hospitalization, Other)
  Sender: ABBVIE
  Company Number: CN-ABBVIE-6022413

PATIENT
  Age: 70 Year
  Sex: Male
  Weight: 71 kg

DRUGS (4)
  1. VENETOCLAX [Suspect]
     Active Substance: VENETOCLAX
     Indication: Acute myeloid leukaemia
     Dosage: 400 MILLIGRAM
     Route: 048
     Dates: start: 20241017, end: 20241026
  2. AZACITIDINE [Suspect]
     Active Substance: AZACITIDINE
     Indication: Acute myeloid leukaemia
     Dosage: 0.1 GRAM
     Route: 058
     Dates: start: 20241017, end: 20241023
  3. Spleen aminopeptide [Concomitant]
     Indication: Product used for unknown indication
     Dosage: 5 TABLETS/TIME, THREE TIMES IN DAY
  4. CAFFEIC ACID [Concomitant]
     Active Substance: CAFFEIC ACID
     Indication: Product used for unknown indication
     Dosage: 3 TABLETS/TIME, THREE TIME DAY

REACTIONS (3)
  - Myelosuppression [Recovering/Resolving]
  - Agranulocytosis [Recovering/Resolving]
  - Platelet count decreased [Unknown]

NARRATIVE: CASE EVENT DATE: 20241026
